FAERS Safety Report 5664745-8 (Version None)
Quarter: 2008Q1

REPORT INFORMATION
  Report Type: 
  Country: None (occurrence: None)
  Receive Date: 20080314
  Receipt Date: 20080311
  Transmission Date: 20080703
  Serious: Yes (Other)
  Sender: FDA-Public Use
  Company Number: US-ASTRAZENECA-2008UW05005

PATIENT
  Age: 63 Year
  Sex: Male

DRUGS (3)
  1. CRESTOR [Suspect]
     Route: 048
     Dates: start: 20041201
  2. TRICOR [Concomitant]
     Dates: start: 20041201
  3. OMEGA 3 [Concomitant]

REACTIONS (2)
  - MUSCLE STRAIN [None]
  - TENDONITIS [None]
